FAERS Safety Report 20994789 (Version 3)
Quarter: 2022Q3

REPORT INFORMATION
  Report Type: Report from Study
  Country: GB (occurrence: GB)
  Receive Date: 20220622
  Receipt Date: 20220902
  Transmission Date: 20221027
  Serious: Yes (Hospitalization, Other)
  Sender: FDA-Public Use
  Company Number: GB-BRISTOL-MYERS SQUIBB COMPANY-2022-048018

PATIENT
  Age: 66 Year

DRUGS (28)
  1. BORTEZOMIB [Suspect]
     Active Substance: BORTEZOMIB
     Indication: Product used for unknown indication
     Dosage: 2 MILLIGRAM, QD
     Route: 058
     Dates: start: 20190627, end: 20190627
  2. BORTEZOMIB [Suspect]
     Active Substance: BORTEZOMIB
     Dosage: 2 MILLIGRAM, QD
     Route: 058
     Dates: start: 20190701, end: 20190701
  3. BORTEZOMIB [Suspect]
     Active Substance: BORTEZOMIB
     Dosage: 2 MILLIGRAM, QD
     Route: 058
     Dates: start: 20190704, end: 20190704
  4. BORTEZOMIB [Suspect]
     Active Substance: BORTEZOMIB
     Dosage: 2 MILLIGRAM, QD
     Route: 058
     Dates: start: 20190708, end: 20190708
  5. BORTEZOMIB [Suspect]
     Active Substance: BORTEZOMIB
     Dosage: 2 MILLIGRAM
     Route: 058
     Dates: start: 20190726, end: 20190726
  6. BORTEZOMIB [Suspect]
     Active Substance: BORTEZOMIB
     Dosage: 2 MILLIGRAM, QD
     Route: 058
     Dates: start: 20190729, end: 20190729
  7. BORTEZOMIB [Suspect]
     Active Substance: BORTEZOMIB
     Dosage: 2 MILLIGRAM, QD
     Route: 058
     Dates: start: 20190802, end: 20190802
  8. BORTEZOMIB [Suspect]
     Active Substance: BORTEZOMIB
     Dosage: 2 MILLIGRAM, QD
     Route: 058
     Dates: start: 20190805, end: 20190805
  9. BORTEZOMIB [Suspect]
     Active Substance: BORTEZOMIB
     Dosage: 2 MILLIGRAM, QD
     Route: 058
     Dates: start: 20190823, end: 20190823
  10. BORTEZOMIB [Suspect]
     Active Substance: BORTEZOMIB
     Dosage: 2 MILLIGRAM, QD
     Route: 058
     Dates: start: 20190830, end: 20190830
  11. BORTEZOMIB [Suspect]
     Active Substance: BORTEZOMIB
     Dosage: 2 MILLIGRAM, QD
     Route: 058
     Dates: start: 20190906, end: 20190906
  12. BORTEZOMIB [Suspect]
     Active Substance: BORTEZOMIB
     Dosage: 2 MILLIGRAM, QD
     Route: 058
     Dates: start: 20190909, end: 20190909
  13. DEXAMETHASONE [Suspect]
     Active Substance: DEXAMETHASONE
     Indication: Product used for unknown indication
     Dosage: 20 MILLIGRAM, BID
     Route: 048
     Dates: start: 20190627, end: 20190630
  14. DEXAMETHASONE [Suspect]
     Active Substance: DEXAMETHASONE
     Dosage: 20 MILLIGRAM, BID
     Route: 048
     Dates: start: 20190708, end: 20190709
  15. DEXAMETHASONE [Suspect]
     Active Substance: DEXAMETHASONE
     Dosage: 20 MILLIGRAM, BID
     Route: 048
     Dates: start: 20190726, end: 20190727
  16. DEXAMETHASONE [Suspect]
     Active Substance: DEXAMETHASONE
     Dosage: 20 MILLIGRAM, BID
     Route: 048
     Dates: start: 20190729, end: 20190730
  17. DEXAMETHASONE [Suspect]
     Active Substance: DEXAMETHASONE
     Dosage: 20 MILLIGRAM, BID
     Route: 048
     Dates: start: 20190802, end: 20190803
  18. DEXAMETHASONE [Suspect]
     Active Substance: DEXAMETHASONE
     Dosage: 20 MILLIGRAM, BID
     Route: 048
     Dates: start: 20190805, end: 20190806
  19. DEXAMETHASONE [Suspect]
     Active Substance: DEXAMETHASONE
     Dosage: 20 MILLIGRAM, BID
     Route: 048
     Dates: start: 20190823, end: 20190824
  20. DEXAMETHASONE [Suspect]
     Active Substance: DEXAMETHASONE
     Dosage: 20 MILLIGRAM, BID
     Route: 048
     Dates: start: 20190830, end: 20190831
  21. DEXAMETHASONE [Suspect]
     Active Substance: DEXAMETHASONE
     Dosage: 20 MILLIGRAM, BID
     Route: 048
     Dates: start: 20190906, end: 20190907
  22. DEXAMETHASONE [Suspect]
     Active Substance: DEXAMETHASONE
     Dosage: 20 MILLIGRAM, BID
     Route: 048
     Dates: start: 20190909, end: 20190910
  23. THALIDOMIDE [Suspect]
     Active Substance: THALIDOMIDE
     Indication: Product used for unknown indication
     Dosage: 100 MILLIGRAM, QD
     Route: 048
     Dates: start: 20190627, end: 20190717
  24. THALIDOMIDE [Suspect]
     Active Substance: THALIDOMIDE
     Dosage: 1100 MILLIGRAM
     Route: 065
     Dates: start: 20190718, end: 20190725
  25. THALIDOMIDE [Suspect]
     Active Substance: THALIDOMIDE
     Dosage: 100 MILLIGRAM, QD
     Route: 048
     Dates: start: 20190726, end: 20190815
  26. THALIDOMIDE [Suspect]
     Active Substance: THALIDOMIDE
     Dosage: 1100 MILLIGRAM
     Route: 065
     Dates: start: 20190816, end: 20190822
  27. THALIDOMIDE [Suspect]
     Active Substance: THALIDOMIDE
     Dosage: 100 MILLIGRAM, QD
     Route: 048
     Dates: start: 20190823, end: 20190915
  28. THALIDOMIDE [Suspect]
     Active Substance: THALIDOMIDE
     Dosage: 1100 MILLIGRAM
     Route: 065
     Dates: start: 20190916, end: 20190922

REACTIONS (3)
  - Polyneuropathy [Not Recovered/Not Resolved]
  - Dysaesthesia [Not Recovered/Not Resolved]
  - Pneumonia [Recovered/Resolved]

NARRATIVE: CASE EVENT DATE: 20190812
